FAERS Safety Report 5754561-0 (Version None)
Quarter: 2008Q2

REPORT INFORMATION
  Report Type: 
  Country: None (occurrence: None)
  Receive Date: 20080530
  Receipt Date: 20080519
  Transmission Date: 20081010
  Serious: Yes (Hospitalization, Other)
  Sender: FDA-Public Use
  Company Number: DE-PFIZER INC-2008042855

PATIENT
  Sex: Male
  Weight: 88 kg

DRUGS (10)
  1. VFEND [Suspect]
     Indication: ASPERGILLOSIS
     Route: 042
  2. CORTISONE [Concomitant]
  3. ZOFRAN [Concomitant]
  4. AMBISOME [Concomitant]
  5. MERONEM [Concomitant]
  6. VANCOMYCIN [Concomitant]
  7. METOCLOPRAMIDE [Concomitant]
  8. FORTECORTIN [Concomitant]
  9. MANNITOL [Concomitant]
  10. ALL OTHER THERAPEUTIC PRODUCTS [Concomitant]

REACTIONS (3)
  - BRAIN OEDEMA [None]
  - NERVOUS SYSTEM DISORDER [None]
  - SPEECH DISORDER [None]
